FAERS Safety Report 18207598 (Version 1)
Quarter: 2020Q3

REPORT INFORMATION
  Report Type: Spontaneous
  Country: US (occurrence: US)
  Receive Date: 20200828
  Receipt Date: 20200828
  Transmission Date: 20201103
  Serious: Yes (Other)
  Sender: FDA-Public Use
  Company Number: US-SUNOVION-2020SUN002466

PATIENT
  Age: 32 Year
  Sex: Male

DRUGS (5)
  1. APTIOM [Suspect]
     Active Substance: ESLICARBAZEPINE ACETATE
     Indication: SEIZURE
     Dosage: 200 MG, AT 10:00 AM; 600 MG AT 19:30 PM
     Route: 048
     Dates: start: 20200819
  2. APTIOM [Suspect]
     Active Substance: ESLICARBAZEPINE ACETATE
     Dosage: 1000 MG
     Route: 048
     Dates: start: 202008, end: 20200819
  3. XCOPRI [Suspect]
     Active Substance: CENOBAMATE
     Indication: SEIZURE
     Dosage: 100 MG
     Route: 048
  4. APTIOM [Suspect]
     Active Substance: ESLICARBAZEPINE ACETATE
     Dosage: 1200 MG
     Route: 048
     Dates: end: 202008
  5. XCOPRI [Suspect]
     Active Substance: CENOBAMATE
     Dosage: TITRATED UP
     Dates: start: 2020

REACTIONS (4)
  - Seizure [Not Recovered/Not Resolved]
  - Off label use [Unknown]
  - Confusional state [Not Recovered/Not Resolved]
  - Feeling abnormal [Not Recovered/Not Resolved]
